FAERS Safety Report 5050349-7 (Version None)
Quarter: 2006Q2

REPORT INFORMATION
  Report Type: 
  Country: None (occurrence: None)
  Receive Date: 20060614
  Receipt Date: 20060417
  Transmission Date: 20061013
  Serious: Yes (Other)
  Sender: FDA-Public Use
  Company Number: 421957

PATIENT
  Age: 68 Year
  Sex: Female
  Weight: 72.6 kg

DRUGS (1)
  1. BONIVA [Suspect]
     Indication: DRUG USE FOR UNKNOWN INDICATION
     Dosage: ORAL
     Route: 048
     Dates: start: 20051007

REACTIONS (3)
  - DIZZINESS [None]
  - HEADACHE [None]
  - NECK PAIN [None]
